FAERS Safety Report 19704007 (Version 1)
Quarter: 2021Q3

REPORT INFORMATION
  Report Type: Spontaneous
  Country: US (occurrence: US)
  Receive Date: 20210813
  Receipt Date: 20210813
  Transmission Date: 20211014
  Serious: Yes (Death)
  Sender: FDA-Public Use
  Company Number: None

PATIENT
  Age: 70 Year
  Sex: Female

DRUGS (10)
  1. SAMSCA [Suspect]
     Active Substance: TOLVAPTAN
     Indication: HYPONATRAEMIA
     Dosage: ?          OTHER FREQUENCY:ONCE WEEKLY;?
     Route: 048
     Dates: start: 20210128, end: 20210809
  2. ATIVAN 0.5MG [Concomitant]
  3. OXYCODONE 5MG [Concomitant]
     Active Substance: OXYCODONE
  4. CARVEDILOL 25MG [Concomitant]
     Active Substance: CARVEDILOL
  5. CLONIDINE 0.1MG [Concomitant]
     Active Substance: CLONIDINE
  6. PULMICORT 180MCG [Concomitant]
  7. CARDIZEM CD 10MG [Concomitant]
  8. LEXAPRO [Concomitant]
     Active Substance: ESCITALOPRAM OXALATE
  9. PROAIR INHALER [Concomitant]
     Active Substance: ALBUTEROL SULFATE
  10. WELLBUTRIN XL [Concomitant]
     Active Substance: BUPROPION HYDROCHLORIDE

REACTIONS (1)
  - Death [None]

NARRATIVE: CASE EVENT DATE: 20210809
